FAERS Safety Report 6791125-4 (Version None)
Quarter: 2010Q2

REPORT INFORMATION
  Report Type: 
  Country: None (occurrence: None)
  Receive Date: 20100623
  Receipt Date: 20100623
  Transmission Date: 20101027
  Serious: Yes (Disabling, Other)
  Sender: FDA-Public Use
  Company Number: None

PATIENT
  Age: 59 Year
  Sex: Female
  Weight: 62.5964 kg

DRUGS (2)
  1. HERCEPTIN [Suspect]
     Indication: BREAST CANCER
     Dosage: UNKNOWN  WEEKLY IV DRIP
     Route: 041
     Dates: start: 20090930, end: 20100605
  2. HERCEPTIN [Suspect]
     Indication: EPIDERMAL GROWTH FACTOR RECEPTOR INCREASED
     Dosage: UNKNOWN  WEEKLY IV DRIP
     Route: 041
     Dates: start: 20090930, end: 20100605

REACTIONS (5)
  - COUGH [None]
  - EJECTION FRACTION DECREASED [None]
  - FLUID RETENTION [None]
  - LUNG INFILTRATION [None]
  - PULMONARY OEDEMA [None]
